FAERS Safety Report 14405542 (Version 5)
Quarter: 2019Q1

REPORT INFORMATION
  Report Type: Spontaneous
  Country: US (occurrence: US)
  Receive Date: 20180118
  Receipt Date: 20190321
  Transmission Date: 20190417
  Serious: No
  Sender: FDA-Public Use
  Company Number: US-PFIZER INC-2018022039

PATIENT
  Age: 65 Year
  Sex: Female

DRUGS (1)
  1. IBRANCE [Suspect]
     Active Substance: PALBOCICLIB
     Indication: BREAST CANCER FEMALE
     Dosage: 125 MG, CYCLIC, (DAILY FOR 21 DAYS ON AND 7 DAYS OFF)
     Route: 048
     Dates: start: 201711

REACTIONS (6)
  - Alopecia [Unknown]
  - Constipation [Unknown]
  - Skin exfoliation [Unknown]
  - Muscle spasms [Recovered/Resolved]
  - Intentional product misuse [Unknown]
  - Blood glucose increased [Unknown]
